FAERS Safety Report 9735543 (Version 1)
Quarter: 2013Q4

REPORT INFORMATION
  Report Type: Spontaneous
  Country: US (occurrence: US)
  Receive Date: 20131206
  Receipt Date: 20131206
  Transmission Date: 20140711
  Serious: Yes (Other)
  Sender: FDA-Public Use
  Company Number: CHPA2013US017796

PATIENT
  Sex: Male

DRUGS (2)
  1. VOLTAREN GEL [Suspect]
     Indication: NEUROPATHY PERIPHERAL
     Dosage: UNK
     Route: 065
  2. VOLTAREN GEL [Suspect]
     Indication: OFF LABEL USE

REACTIONS (2)
  - Haemorrhage urinary tract [Recovered/Resolved]
  - Drug administered at inappropriate site [Unknown]
